FAERS Safety Report 4307590-8 (Version None)
Quarter: 2004Q1

REPORT INFORMATION
  Report Type: 
  Country: None (occurrence: None)
  Receive Date: 20040226
  Receipt Date: 20040210
  Transmission Date: 20041129
  Serious: Yes (Hospitalization)
  Sender: FDA-Public Use
  Company Number: 30018558-R04A132-1

PATIENT
  Age: 57 Year
  Sex: Female
  Weight: 78 kg

DRUGS (1)
  1. DIANEAL PD-2 W/ DEXTROSE 1.5% [Suspect]
     Indication: PERITONEAL DIALYSIS
     Dosage: DIANEAL PD-2, 1.5% SOLUTION, INTRAPERITONEAL
     Route: 033
     Dates: start: 19990101, end: 20040101

REACTIONS (3)
  - ABDOMINAL PAIN [None]
  - CRYING [None]
  - VOMITING [None]
